FAERS Safety Report 10065498 (Version 1)
Quarter: 2014Q2

REPORT INFORMATION
  Report Type: Spontaneous
  Country: US (occurrence: US)
  Receive Date: 20140408
  Receipt Date: 20140408
  Transmission Date: 20141212
  Serious: No
  Sender: FDA-Public Use
  Company Number: US-BAYER-2014-052274

PATIENT
  Age: 30 Year
  Sex: Male

DRUGS (1)
  1. GADAVIST [Suspect]
     Indication: INTERVERTEBRAL DISC PROTRUSION
     Dosage: 8 ML, ONCE
     Route: 042
     Dates: start: 20140321, end: 20140321

REACTIONS (3)
  - Feeling hot [None]
  - Nausea [None]
  - Headache [None]
